FAERS Safety Report 7573681-1 (Version None)
Quarter: 2011Q2

REPORT INFORMATION
  Report Type: 
  Country: None (occurrence: None)
  Receive Date: 20110627
  Receipt Date: 20110623
  Transmission Date: 20111010
  Serious: Yes (Death, Life-Threatening, Hospitalization)
  Sender: FDA-Public Use
  Company Number: ID-B.I. PHARMACEUTICALS,INC./RIDGEFIELD-2011-CS-00502IP

PATIENT
  Age: 60 Year
  Sex: Female

DRUGS (3)
  1. LASIX [Concomitant]
     Indication: CARDIAC FAILURE
     Dosage: 40 MG
  2. PRADAXA [Suspect]
     Indication: CEREBROVASCULAR ACCIDENT PROPHYLAXIS
     Dosage: 75 MG
     Route: 048
  3. DIGOXIN [Concomitant]
     Indication: CARDIAC FAILURE
     Dosage: 0.5 MG

REACTIONS (2)
  - CARDIAC FAILURE [None]
  - MELAENA [None]
